FAERS Safety Report 24948690 (Version 3)
Quarter: 2025Q2

REPORT INFORMATION
  Report Type: Spontaneous
  Country: US (occurrence: US)
  Receive Date: 20250210
  Receipt Date: 20250520
  Transmission Date: 20250717
  Serious: No
  Sender: COSETTE PHARMACEUTICALS INC
  Company Number: US-COSETTE-CP2025US000083

PATIENT
  Sex: Female

DRUGS (1)
  1. VYLEESI [Suspect]
     Active Substance: BREMELANOTIDE ACETATE
     Indication: Product used for unknown indication
     Route: 065

REACTIONS (5)
  - Skin discolouration [Unknown]
  - Periorbital swelling [Unknown]
  - Nausea [Recovering/Resolving]
  - Blood pressure increased [Recovering/Resolving]
  - Skin hyperpigmentation [Unknown]
